FAERS Safety Report 9879353 (Version 2)
Quarter: 2014Q1

REPORT INFORMATION
  Report Type: Spontaneous
  Country: CA (occurrence: CA)
  Receive Date: 20140206
  Receipt Date: 20140212
  Transmission Date: 20141002
  Serious: Yes (Other)
  Sender: FDA-Public Use
  Company Number: PHHY2014CA014770

PATIENT
  Sex: Female
  Weight: 55.33 kg

DRUGS (3)
  1. DIOVAN [Suspect]
     Dosage: 160 MG, UNK
  2. ACTONEL [Concomitant]
     Dosage: UNK UKN, UNK
  3. CRESTOR [Concomitant]
     Dosage: UNK UKN, UNK

REACTIONS (5)
  - Blood potassium abnormal [Recovered/Resolved]
  - Headache [Recovered/Resolved]
  - Dizziness [Recovered/Resolved]
  - Blood pressure inadequately controlled [Recovered/Resolved]
  - Drug ineffective [Recovered/Resolved]
